FAERS Safety Report 25089839 (Version 1)
Quarter: 2025Q1

REPORT INFORMATION
  Report Type: Spontaneous
  Country: FR (occurrence: FR)
  Receive Date: 20250318
  Receipt Date: 20250318
  Transmission Date: 20250408
  Serious: Yes (Life-Threatening, Hospitalization)
  Sender: ORGANON
  Company Number: None

PATIENT
  Age: 3 Month
  Sex: Female
  Weight: 2.73 kg

DRUGS (8)
  1. BETAMETHASONE [Suspect]
     Active Substance: BETAMETHASONE
     Indication: Immature respiratory system
     Dosage: 1 DOSAGE FORM, QD
     Route: 064
     Dates: start: 20240109, end: 20240110
  2. FLUINDIONE [Suspect]
     Active Substance: FLUINDIONE
     Indication: Cardiac disorder
     Route: 064
     Dates: end: 202308
  3. LOVENOX [Suspect]
     Active Substance: ENOXAPARIN SODIUM
     Indication: Cardiac disorder
     Dosage: 6000 IU 2 TIMES A DAY
     Route: 064
     Dates: start: 202308, end: 20240119
  4. PENICILLIN G BENZATHINE [Suspect]
     Active Substance: PENICILLIN G BENZATHINE
     Indication: Product used for unknown indication
     Dosage: 2.4 MILLION INTERNATIONAL UNIT, QM (POWDER AND SOLVENT FOR INJECTABLE SUSPENSION)
     Route: 064
     Dates: end: 20240119
  5. BISOPROLOL [Suspect]
     Active Substance: BISOPROLOL
     Indication: Cardiac disorder
     Dosage: 10 MILLIGRAM, QD
     Route: 064
     Dates: end: 20240119
  6. FUROSEMIDE [Suspect]
     Active Substance: FUROSEMIDE
     Indication: Cardiac disorder
     Route: 064
     Dates: start: 20231121, end: 20240119
  7. POTASSIUM CHLORIDE [Suspect]
     Active Substance: POTASSIUM CHLORIDE
     Indication: Product used for unknown indication
     Dosage: 1 DOSAGE FORM, QD
     Route: 064
     Dates: start: 20231121, end: 20240119
  8. PRIMPERAN [Concomitant]
     Active Substance: METOCLOPRAMIDE HYDROCHLORIDE
     Indication: Morning sickness
     Dosage: 10MG X3/DAY
     Dates: start: 20230814

REACTIONS (9)
  - Maternal exposure during pregnancy [Recovered/Resolved]
  - Foetal growth restriction [Recovered/Resolved]
  - Foetal heart rate disorder [Recovered/Resolved]
  - Premature baby [Recovered/Resolved]
  - Neonatal respiratory depression [Recovered/Resolved]
  - Neonatal gastrointestinal disorder [Recovered/Resolved]
  - Hospitalisation [Recovered/Resolved]
  - Transfusion [Recovered/Resolved]
  - Neonatal hyperglycaemia [Recovered/Resolved]

NARRATIVE: CASE EVENT DATE: 20231031
